FAERS Safety Report 9575557 (Version 1)
Quarter: 2013Q4

REPORT INFORMATION
  Report Type: Spontaneous
  Country: US (occurrence: US)
  Receive Date: 20131001
  Receipt Date: 20131001
  Transmission Date: 20140711
  Serious: No
  Sender: FDA-Public Use
  Company Number: US-AMGEN-USASP2012084264

PATIENT
  Age: 27 Year
  Sex: Female

DRUGS (2)
  1. ENBREL [Suspect]
     Indication: ANKYLOSING SPONDYLITIS
     Dosage: 50 MG, WEEKLY
     Route: 058
     Dates: start: 20121008, end: 20121107
  2. HUMIRA [Concomitant]
     Dosage: UNK

REACTIONS (4)
  - Local swelling [Unknown]
  - Pain in extremity [Unknown]
  - Erythema [Unknown]
  - Candida infection [Unknown]
